FAERS Safety Report 24555162 (Version 1)
Quarter: 2024Q4

REPORT INFORMATION
  Report Type: Spontaneous
  Country: PT (occurrence: PT)
  Receive Date: 20241028
  Receipt Date: 20241028
  Transmission Date: 20250115
  Serious: Yes (Other)
  Sender: RANBAXY
  Company Number: PT-SUN PHARMACEUTICAL INDUSTRIES LTD-2024RR-441835

PATIENT

DRUGS (1)
  1. TILDRAKIZUMAB [Suspect]
     Active Substance: TILDRAKIZUMAB
     Indication: Psoriasis
     Dosage: 100 MILLIGRAM - AT WEEKS 0 AND 4, FOLLOWED BY A MAINTENANCE DOSE EVERY 12 WEEKS
     Route: 065

REACTIONS (3)
  - Urinary tract infection [Unknown]
  - Upper respiratory tract infection [Unknown]
  - Tonsillitis [Unknown]
